FAERS Safety Report 19968156 (Version 1)
Quarter: 2021Q4

REPORT INFORMATION
  Report Type: Spontaneous
  Country: US (occurrence: US)
  Receive Date: 20211019
  Receipt Date: 20211019
  Transmission Date: 20220303
  Serious: No
  Sender: FDA-Public Use
  Company Number: US-SA-SAC20211013001300

PATIENT
  Sex: Female

DRUGS (4)
  1. DUPIXENT [Suspect]
     Active Substance: DUPILUMAB
     Dosage: 300 MG
     Route: 058
     Dates: start: 20210817
  2. LORATADINE [Concomitant]
     Active Substance: LORATADINE
     Dosage: 10MG
  3. MOMETASONE FUROATE [Concomitant]
     Active Substance: MOMETASONE FUROATE
  4. PREDNISONE [Concomitant]
     Active Substance: PREDNISONE
     Dosage: 10MG

REACTIONS (1)
  - Depression [Unknown]
